FAERS Safety Report 21146132 (Version 1)
Quarter: 2022Q3

REPORT INFORMATION
  Report Type: Spontaneous
  Country: IT (occurrence: IT)
  Receive Date: 20220729
  Receipt Date: 20220729
  Transmission Date: 20221026
  Serious: Yes (Hospitalization, Other)
  Sender: FDA-Public Use
  Company Number: IT-MINISAL02-875153

PATIENT
  Age: 47 Year
  Sex: Male

DRUGS (3)
  1. DELORAZEPAM [Suspect]
     Active Substance: DELORAZEPAM
     Indication: Product used for unknown indication
     Dosage: UNK, 1 BOTTLE.
     Route: 048
     Dates: start: 20220518, end: 20220518
  2. PAROXETINE [Suspect]
     Active Substance: PAROXETINE
     Indication: Product used for unknown indication
     Dosage: UNK, 44 CP
     Route: 048
     Dates: start: 20220518, end: 20220518
  3. KETOPROFEN LYSINE [Suspect]
     Active Substance: KETOPROFEN LYSINE
     Indication: Product used for unknown indication
     Dosage: UNK, 6 CP
     Route: 048
     Dates: start: 20220518, end: 20220518

REACTIONS (3)
  - Suicide attempt [Recovering/Resolving]
  - Drug abuse [Recovering/Resolving]
  - Sopor [Recovering/Resolving]

NARRATIVE: CASE EVENT DATE: 20220518
